FAERS Safety Report 8986020 (Version 2)
Quarter: 2013Q1

REPORT INFORMATION
  Report Type: Spontaneous
  Country: US (occurrence: US)
  Receive Date: 20121226
  Receipt Date: 20130130
  Transmission Date: 20140127
  Serious: Yes (Other)
  Sender: FDA-Public Use
  Company Number: US-SANOFI-AVENTIS-2012SA091014

PATIENT
  Age: 93 Year
  Sex: Female
  Weight: 46.5 kg

DRUGS (2)
  1. FERRLECIT [Suspect]
     Indication: IRON DEFICIENCY ANAEMIA
     Route: 042
     Dates: start: 20070124, end: 20121208
  2. FERRLECIT [Suspect]
     Indication: IRON DEFICIENCY ANAEMIA
     Route: 042

REACTIONS (1)
  - Unresponsive to stimuli [Recovered/Resolved]
